FAERS Safety Report 20254463 (Version 1)
Quarter: 2021Q4

REPORT INFORMATION
  Report Type: Spontaneous
  Country: FR (occurrence: FR)
  Receive Date: 20211230
  Receipt Date: 20211230
  Transmission Date: 20220303
  Serious: Yes (Other)
  Sender: FDA-Public Use
  Company Number: FR-ABBVIE-21K-056-4213643-00

PATIENT
  Sex: Female

DRUGS (10)
  1. VALPROATE SODIUM [Suspect]
     Active Substance: VALPROATE SODIUM
     Indication: Epilepsy
     Dosage: 1.25 TO 3 GRAM
     Route: 048
     Dates: start: 19721226
  2. VALPROATE SODIUM [Suspect]
     Active Substance: VALPROATE SODIUM
     Route: 048
  3. VALPROATE SODIUM [Suspect]
     Active Substance: VALPROATE SODIUM
     Route: 048
     Dates: start: 1990
  4. VALPROATE SODIUM [Suspect]
     Active Substance: VALPROATE SODIUM
     Route: 048
     Dates: start: 199507, end: 199707
  5. VALPROATE SODIUM [Suspect]
     Active Substance: VALPROATE SODIUM
     Route: 048
     Dates: start: 199707, end: 1998
  6. VALPROATE SODIUM [Suspect]
     Active Substance: VALPROATE SODIUM
     Route: 048
     Dates: start: 2002
  7. VALPROATE SODIUM [Suspect]
     Active Substance: VALPROATE SODIUM
     Route: 048
     Dates: start: 2016
  8. VALPROATE SODIUM [Suspect]
     Active Substance: VALPROATE SODIUM
     Route: 048
     Dates: start: 2015
  9. VALPROATE SODIUM [Suspect]
     Active Substance: VALPROATE SODIUM
     Indication: Epilepsy
     Route: 048
     Dates: start: 1989
  10. LAMOTRIGINE [Suspect]
     Active Substance: LAMOTRIGINE
     Indication: Product used for unknown indication
     Route: 065
     Dates: start: 1998

REACTIONS (9)
  - Seizure [Unknown]
  - Generalised tonic-clonic seizure [Unknown]
  - Hunger [Unknown]
  - Weight increased [Unknown]
  - Petit mal epilepsy [Unknown]
  - Asthenia [Unknown]
  - Somnolence [Unknown]
  - Maternal exposure during pregnancy [Unknown]
  - Live birth [Unknown]

NARRATIVE: CASE EVENT DATE: 19980101
